FAERS Safety Report 24770584 (Version 1)
Quarter: 2024Q4

REPORT INFORMATION
  Report Type: Report from Study
  Country: US (occurrence: US)
  Receive Date: 20241224
  Receipt Date: 20241224
  Transmission Date: 20250115
  Serious: Yes (Other)
  Sender: ABBVIE
  Company Number: US-ABBVIE-6016323

PATIENT
  Age: 68 Year
  Sex: Female

DRUGS (1)
  1. HUMIRA [Suspect]
     Active Substance: ADALIMUMAB
     Indication: Rheumatoid arthritis
     Dosage: LAST ADMIN DATE-2024
     Route: 058
     Dates: start: 20240608

REACTIONS (7)
  - Nasal polyps [Recovering/Resolving]
  - Poor quality sleep [Unknown]
  - Nasal congestion [Unknown]
  - Sneezing [Unknown]
  - Rheumatoid arthritis [Unknown]
  - Inflammation [Unknown]
  - Multiple allergies [Unknown]

NARRATIVE: CASE EVENT DATE: 20240101
